FAERS Safety Report 7248383-1 (Version None)
Quarter: 2011Q1

REPORT INFORMATION
  Report Type: 
  Country: None (occurrence: None)
  Receive Date: 20110127
  Receipt Date: 20110124
  Transmission Date: 20110831
  Serious: Yes (Other)
  Sender: FDA-Public Use
  Company Number: US-PFIZER INC-2011015667

PATIENT
  Sex: Female
  Weight: 68.934 kg

DRUGS (6)
  1. NABUMETONE [Suspect]
     Indication: GINGIVAL PAIN
     Dosage: 500 MG, UNK
  2. ALPRAZOLAM [Concomitant]
     Indication: ILL-DEFINED DISORDER
     Dosage: 0.5 MG, UNK
  3. NABUMETONE [Suspect]
     Indication: GINGIVAL ERYTHEMA
  4. ADVIL PM [Suspect]
     Indication: SLEEP DISORDER
     Dosage: 200 MG, AS NEEDED
     Route: 048
     Dates: start: 20080101
  5. LIPITOR [Concomitant]
     Indication: BLOOD CHOLESTEROL INCREASED
     Dosage: 10 MG, UNK
  6. NABUMETONE [Suspect]
     Indication: GINGIVAL SWELLING

REACTIONS (5)
  - GINGIVAL ERYTHEMA [None]
  - GINGIVAL PAIN [None]
  - DIARRHOEA [None]
  - GINGIVAL SWELLING [None]
  - INCORRECT DOSE ADMINISTERED [None]
